FAERS Safety Report 7543462-3 (Version None)
Quarter: 2011Q2

REPORT INFORMATION
  Report Type: 
  Country: None (occurrence: None)
  Receive Date: 20110613
  Receipt Date: 20110531
  Transmission Date: 20111010
  Serious: Yes (Other)
  Sender: FDA-Public Use
  Company Number: PHHY2011SE48141

PATIENT
  Age: 60 Year
  Sex: Female

DRUGS (3)
  1. ZOMETA [Suspect]
     Indication: RIB FRACTURE
     Dates: start: 20101120
  2. FEMARA [Concomitant]
  3. KALCIPOS-D [Concomitant]

REACTIONS (3)
  - MANIA [None]
  - EUPHORIC MOOD [None]
  - MOVEMENT DISORDER [None]
